FAERS Safety Report 19997160 (Version 10)
Quarter: 2025Q4

REPORT INFORMATION
  Report Type: Spontaneous
  Country: US (occurrence: US)
  Receive Date: 20211026
  Receipt Date: 20251009
  Transmission Date: 20260118
  Serious: Yes (Disabling)
  Sender: PFIZER
  Company Number: US-PFIZER INC-2021822218

PATIENT
  Age: 53 Year
  Sex: Male

DRUGS (2)
  1. XELJANZ XR [Suspect]
     Active Substance: TOFACITINIB CITRATE
     Dosage: 11 MG, 1X/DAY (ONCE A DAY)
     Route: 048
  2. XELJANZ XR [Suspect]
     Active Substance: TOFACITINIB CITRATE
     Dosage: 11 MG, DAILY (EXTENDED RELEASE. TAKE 1 TABLET BY MOUTH EVERY DAY)
     Route: 048

REACTIONS (6)
  - Impaired work ability [Unknown]
  - Back pain [Recovering/Resolving]
  - Arthralgia [Recovering/Resolving]
  - Pain in extremity [Recovering/Resolving]
  - Neck pain [Recovering/Resolving]
  - Sensitivity to weather change [Recovering/Resolving]
